FAERS Safety Report 6297013-4 (Version None)
Quarter: 2009Q3

REPORT INFORMATION
  Report Type: 
  Country: None (occurrence: None)
  Receive Date: 20090804
  Receipt Date: 20090723
  Transmission Date: 20100115
  Serious: Yes (Hospitalization)
  Sender: FDA-Public Use
  Company Number: AU-WYE-H10342709

PATIENT
  Sex: Male

DRUGS (1)
  1. PANTOPRAZOLE SODIUM [Suspect]
     Indication: OESOPHAGEAL DISORDER
     Route: 042
     Dates: start: 20090531, end: 20090602

REACTIONS (3)
  - APTYALISM [None]
  - EATING DISORDER [None]
  - SPEECH DISORDER [None]
